FAERS Safety Report 11840464 (Version 1)
Quarter: 2015Q4

REPORT INFORMATION
  Report Type: Report from Study
  Country: US (occurrence: US)
  Receive Date: 20151216
  Receipt Date: 20151216
  Transmission Date: 20160305
  Serious: No
  Sender: FDA-Public Use
  Company Number: US-009507513-2005-05-1842

PATIENT
  Sex: Female

DRUGS (2)
  1. RIBAVIRIN. [Suspect]
     Active Substance: RIBAVIRIN
     Indication: CHRONIC HEPATITIS C
     Dosage: DOSE: 1000 MG QD, DURATION: 11 MONTH(S)
     Route: 048
     Dates: start: 200011, end: 200110
  2. INTRON A [Suspect]
     Active Substance: INTERFERON ALFA-2B
     Indication: CHRONIC HEPATITIS C
     Dosage: DOSE: 3 MU TIW, DURATION: 11 MONTH(S)
     Dates: start: 200011, end: 200110

REACTIONS (2)
  - No adverse event [Unknown]
  - Exposure during pregnancy [Unknown]
